FAERS Safety Report 7770124-X (Version None)
Quarter: 2011Q3

REPORT INFORMATION
  Report Type: 
  Country: None (occurrence: None)
  Receive Date: 20110922
  Receipt Date: 20110919
  Transmission Date: 20111222
  Serious: Yes (Hospitalization)
  Sender: FDA-Public Use
  Company Number: AU-ROCHE-803736

PATIENT
  Age: 59 Year
  Sex: Male

DRUGS (2)
  1. RIBAVIRIN [Suspect]
     Indication: HEPATITIS C
     Route: 065
  2. PEG-INTRON [Suspect]
     Indication: HEPATITIS C
     Route: 065

REACTIONS (1)
  - CRYOGLOBULINAEMIA [None]
